FAERS Safety Report 22215355 (Version 3)
Quarter: 2023Q4

REPORT INFORMATION
  Report Type: Spontaneous
  Country: US (occurrence: US)
  Receive Date: 20230415
  Receipt Date: 20231104
  Transmission Date: 20240110
  Serious: No
  Sender: FDA-Public Use
  Company Number: US-GLENMARK PHARMACEUTICALS-2023GMK079456

PATIENT

DRUGS (1)
  1. RYALTRIS [Suspect]
     Active Substance: MOMETASONE FUROATE MONOHYDRATE\OLOPATADINE HYDROCHLORIDE
     Indication: Rhinorrhoea
     Dosage: 2 DOSAGE FORM, BID
     Route: 045

REACTIONS (4)
  - Product use in unapproved indication [Unknown]
  - Cough [Recovered/Resolved]
  - Dysgeusia [Recovered/Resolved]
  - Product after taste [Unknown]
